FAERS Safety Report 6015348-7 (Version None)
Quarter: 2008Q4

REPORT INFORMATION
  Report Type: 
  Country: None (occurrence: None)
  Receive Date: 20081222
  Receipt Date: 20081208
  Transmission Date: 20090506
  Serious: Yes (Other)
  Sender: FDA-Public Use
  Company Number: CA-JNJCH-2008056961

PATIENT
  Age: 15 Year
  Sex: Male

DRUGS (1)
  1. BENYLIN EXTRA STRENGTH COUGH COLD AND SORE THROAT [Suspect]
     Indication: DRUG USE FOR UNKNOWN INDICATION
     Dosage: TEXT:2 TSPS TO 1 TSP UNSPECIFIED
     Route: 048

REACTIONS (5)
  - ASTHENIA [None]
  - BLINDNESS [None]
  - DIZZINESS [None]
  - FATIGUE [None]
  - LOSS OF CONSCIOUSNESS [None]
